FAERS Safety Report 25452431 (Version 1)
Quarter: 2025Q2

REPORT INFORMATION
  Report Type: Spontaneous
  Country: US (occurrence: US)
  Receive Date: 20250618
  Receipt Date: 20250618
  Transmission Date: 20250717
  Serious: Yes (Hospitalization, Other)
  Sender: NOVO NORDISK
  Company Number: US-NOVOPROD-1458877

PATIENT
  Sex: Female

DRUGS (1)
  1. LEVEMIR [Suspect]
     Active Substance: INSULIN DETEMIR
     Indication: Product used for unknown indication
     Dates: start: 2015, end: 2020

REACTIONS (4)
  - Osteomyelitis [Unknown]
  - Septic shock [Unknown]
  - Renal failure [Unknown]
  - Blindness [Unknown]

NARRATIVE: CASE EVENT DATE: 20200101
